FAERS Safety Report 11948403 (Version 1)
Quarter: 2016Q1

REPORT INFORMATION
  Report Type: Other
  Country: IT (occurrence: IT)
  Receive Date: 20160125
  Receipt Date: 20160125
  Transmission Date: 20160526
  Serious: Yes (Other)
  Sender: FDA-Public Use
  Company Number: IT-MYLANLABS-2016M1002122

PATIENT

DRUGS (6)
  1. BISOPROLOL HEMIFUMARATE [Concomitant]
     Active Substance: BISOPROLOL FUMARATE
     Indication: PRODUCT USED FOR UNKNOWN INDICATION
     Dosage: UNK
  2. PANTOPRAZOLE [Concomitant]
     Active Substance: PANTOPRAZOLE SODIUM
     Indication: PRODUCT USED FOR UNKNOWN INDICATION
     Dosage: UNK
  3. VYTORIN [Concomitant]
     Active Substance: EZETIMIBE\SIMVASTATIN
     Indication: PRODUCT USED FOR UNKNOWN INDICATION
     Dosage: UNK
  4. TICLOPIDINE [Concomitant]
     Active Substance: TICLOPIDINE
     Indication: PROPHYLAXIS
     Dosage: 1 DF
     Route: 048
  5. LEVOFLOXACIN MYLAN [Suspect]
     Active Substance: LEVOFLOXACIN
     Indication: URINARY TRACT INFECTION
     Dosage: 1 DF, QD
     Route: 048
     Dates: start: 20151229, end: 20151231
  6. CARDIOASPIRIN [Concomitant]
     Active Substance: ASPIRIN
     Indication: PROPHYLAXIS
     Dosage: 1 DF
     Route: 048

REACTIONS (2)
  - Erythema [Recovering/Resolving]
  - Bronchospasm [Recovering/Resolving]

NARRATIVE: CASE EVENT DATE: 20151231
